FAERS Safety Report 6320361-6 (Version None)
Quarter: 2009Q3

REPORT INFORMATION
  Report Type: 
  Country: None (occurrence: None)
  Receive Date: 20090822
  Receipt Date: 20081031
  Transmission Date: 20100115
  Serious: No
  Sender: FDA-Public Use
  Company Number: US-ABBOTT-08P-163-0485523-00

PATIENT
  Sex: Male

DRUGS (3)
  1. NIASPAN [Suspect]
     Indication: DRUG USE FOR UNKNOWN INDICATION
     Dosage: SIMCOR 500/20MG
  2. NIASPAN [Suspect]
     Dosage: NIASPAN
  3. NIASPAN [Suspect]

REACTIONS (1)
  - FLUSHING [None]
